FAERS Safety Report 22254664 (Version 1)
Quarter: 2023Q2

REPORT INFORMATION
  Report Type: Spontaneous
  Country: US (occurrence: None)
  Receive Date: 20230425
  Receipt Date: 20230425
  Transmission Date: 20230721
  Serious: Yes (Life-Threatening, Hospitalization, Disabling)
  Sender: FDA-Public Use
  Company Number: None

PATIENT
  Sex: Female

DRUGS (1)
  1. TRULICITY [Suspect]
     Active Substance: DULAGLUTIDE
     Indication: Type 2 diabetes mellitus
     Dosage: FREQUENCY : AT BEDTIME;?
     Route: 058
     Dates: start: 20230107, end: 20230218

REACTIONS (12)
  - Moaning [None]
  - Generalised tonic-clonic seizure [None]
  - Injection site pruritus [None]
  - Headache [None]
  - Pain [None]
  - Hypersensitivity [None]
  - Stress [None]
  - Loss of personal independence in daily activities [None]
  - Impaired work ability [None]
  - Somniphobia [None]
  - Depression [None]
  - Emotional disorder [None]

NARRATIVE: CASE EVENT DATE: 20230217
